FAERS Safety Report 14910799 (Version 4)
Quarter: 2018Q3

REPORT INFORMATION
  Report Type: Report from Study
  Country: FR (occurrence: FR)
  Receive Date: 20180517
  Receipt Date: 20180726
  Transmission Date: 20181010
  Serious: Yes (Death, Other)
  Sender: FDA-Public Use
  Company Number: FR-JAZZ-2018-FR-007662

PATIENT

DRUGS (4)
  1. CANCIDAS [Concomitant]
     Active Substance: CASPOFUNGIN ACETATE
     Indication: ANTIFUNGAL PROPHYLAXIS
     Dosage: 50 MG, QD
     Route: 042
     Dates: start: 20141221, end: 20141226
  2. SOLU?MEDROL [Concomitant]
     Active Substance: METHYLPREDNISOLONE SODIUM SUCCINATE
     Indication: IMMUNOSUPPRESSANT DRUG THERAPY
     Dosage: 60 MG, QD
     Route: 042
     Dates: start: 20141222, end: 20141226
  3. ACICLOVIR [Concomitant]
     Active Substance: ACYCLOVIR
     Indication: ANTIVIRAL PROPHYLAXIS
     Dosage: 500 MG, QD
     Route: 042
     Dates: start: 20141223, end: 20141226
  4. DEFITELIO [Suspect]
     Active Substance: DEFIBROTIDE SODIUM
     Indication: VENOUS OCCLUSION
     Dosage: 25.9 MG/KG, QD
     Dates: start: 20141223, end: 20141226

REACTIONS (3)
  - Infectious pleural effusion [Fatal]
  - Atelectasis [Fatal]
  - Renal failure [Fatal]

NARRATIVE: CASE EVENT DATE: 20141226
